FAERS Safety Report 4412927-5 (Version None)
Quarter: 2004Q3

REPORT INFORMATION
  Report Type: 
  Country: None (occurrence: None)
  Receive Date: 20040730
  Receipt Date: 20040730
  Transmission Date: 20050211
  Serious: No
  Sender: FDA-Public Use
  Company Number: None

PATIENT
  Age: 72 Year
  Sex: Male
  Weight: 154 kg

DRUGS (15)
  1. LISINOPRIL [Suspect]
     Indication: COR PULMONALE
     Dosage: 2.5 MG QD RENEWED 11/03-4/22/04
     Dates: start: 20031101, end: 20040422
  2. LISINOPRIL [Suspect]
     Indication: RIGHT VENTRICULAR FAILURE
     Dosage: 2.5 MG QD RENEWED 11/03-4/22/04
     Dates: start: 20031101, end: 20040422
  3. SPIRONOLACTONE [Suspect]
     Indication: COR PULMONALE
     Dosage: 25 MG BID RENEWED 11/03-4/22/04
     Dates: start: 20031101, end: 20040422
  4. SPIRONOLACTONE [Suspect]
     Indication: RIGHT VENTRICULAR FAILURE
     Dosage: 25 MG BID RENEWED 11/03-4/22/04
     Dates: start: 20031101, end: 20040422
  5. HYDRALAZINE HCL [Concomitant]
  6. COUMADIN [Concomitant]
  7. ISOSORBIDE DINITRATE [Concomitant]
  8. RANITIDINE HCL [Concomitant]
  9. FUROSEMIDE [Concomitant]
  10. SODIUM CHLORIDE INJ [Concomitant]
  11. SOLU-MEDROL [Concomitant]
  12. PREVACID [Concomitant]
  13. THIAMINE [Concomitant]
  14. ISORDIL [Concomitant]
  15. DUONEBS [Concomitant]

REACTIONS (2)
  - ELECTROCARDIOGRAM T WAVE PEAKED [None]
  - HYPERKALAEMIA [None]
